FAERS Safety Report 7035240-9 (Version None)
Quarter: 2010Q4

REPORT INFORMATION
  Report Type: 
  Country: None (occurrence: None)
  Receive Date: 20101008
  Receipt Date: 20101005
  Transmission Date: 20110411
  Serious: Yes (Hospitalization)
  Sender: FDA-Public Use
  Company Number: A0757515A

PATIENT
  Age: 59 Year
  Sex: Female
  Weight: 86.4 kg

DRUGS (8)
  1. AVANDIA [Suspect]
     Dosage: 8MG PER DAY
     Route: 048
     Dates: start: 20020201, end: 20070101
  2. AVANDAMET [Suspect]
     Route: 048
     Dates: start: 20031101, end: 20050401
  3. AVAPRO [Concomitant]
  4. METFORMIN [Concomitant]
  5. SIMVASTATIN [Concomitant]
  6. ETODOLAC [Concomitant]
  7. NIFEDIPINE [Concomitant]
  8. NAPROXEN [Concomitant]

REACTIONS (2)
  - ACUTE MYOCARDIAL INFARCTION [None]
  - MYOCARDIAL ISCHAEMIA [None]
